FAERS Safety Report 4566968-8 (Version None)
Quarter: 2005Q1

REPORT INFORMATION
  Report Type: 
  Country: None (occurrence: None)
  Receive Date: 20050201
  Receipt Date: 20040109
  Transmission Date: 20050727
  Serious: Yes (Other)
  Sender: FDA-Public Use
  Company Number: US-BRISTOL-MYERS SQUIBB COMPANY-12474177

PATIENT
  Age: 28 Year
  Sex: Female

DRUGS (7)
  1. STADOL [Suspect]
     Route: 045
     Dates: start: 19990224
  2. PHENERGAN [Concomitant]
  3. CELEBREX [Concomitant]
  4. ULTRAM [Concomitant]
  5. HYDROCODONE + ACETAMINOPHEN [Concomitant]
  6. BUTALBITAL + CAFFEINE + ACETAMINOPHEN [Concomitant]
  7. ORPHENADRINE [Concomitant]

REACTIONS (1)
  - DEPENDENCE [None]
